FAERS Safety Report 6418384-1 (Version None)
Quarter: 2009Q4

REPORT INFORMATION
  Report Type: 
  Country: None (occurrence: None)
  Receive Date: 20091021
  Receipt Date: 20090629
  Transmission Date: 20100525
  Serious: No
  Sender: FDA-Public Use
  Company Number: ALL1-2009-01783

PATIENT
  Age: 37 Year
  Sex: Female
  Weight: 63.5 kg

DRUGS (5)
  1. VYVANSE [Suspect]
     Indication: DEPRESSION
     Dosage: 50 MG, 1X/DAY;QD, ORAL; 50 MG, 1X/DAY;QD, ORAL; 50 MG, 1X/DAY;QD, ORAL
     Route: 048
     Dates: start: 20090301, end: 20090601
  2. VYVANSE [Suspect]
     Indication: DEPRESSION
     Dosage: 50 MG, 1X/DAY;QD, ORAL; 50 MG, 1X/DAY;QD, ORAL; 50 MG, 1X/DAY;QD, ORAL
     Route: 048
     Dates: start: 20090601, end: 20090601
  3. VYVANSE [Suspect]
     Indication: DEPRESSION
     Dosage: 50 MG, 1X/DAY;QD, ORAL; 50 MG, 1X/DAY;QD, ORAL; 50 MG, 1X/DAY;QD, ORAL
     Route: 048
     Dates: start: 20090601, end: 20090628
  4. LEVOTHYROXINE SODIUM [Concomitant]
  5. PROZAC [Concomitant]

REACTIONS (3)
  - ACNE CYSTIC [None]
  - DRUG INEFFECTIVE FOR UNAPPROVED INDICATION [None]
  - OFF LABEL USE [None]
